FAERS Safety Report 25745086 (Version 1)
Quarter: 2025Q3

REPORT INFORMATION
  Report Type: Spontaneous
  Country: EU (occurrence: EU)
  Receive Date: 20250901
  Receipt Date: 20250901
  Transmission Date: 20251020
  Serious: Yes (Death, Other)
  Sender: NOVITIUM PHARMA
  Company Number: EU-NOVITIUMPHARMA-2025ITNVP02177

PATIENT
  Age: 71 Year
  Sex: Male

DRUGS (1)
  1. SILDENAFIL CITRATE [Suspect]
     Active Substance: SILDENAFIL CITRATE
     Indication: High risk sexual behaviour

REACTIONS (3)
  - Aortic aneurysm [Fatal]
  - Haemorrhage intracranial [Fatal]
  - Aneurysm ruptured [Fatal]
